FAERS Safety Report 5910265-2 (Version None)
Quarter: 2008Q4

REPORT INFORMATION
  Report Type: 
  Country: None (occurrence: None)
  Receive Date: 20081007
  Receipt Date: 20080619
  Transmission Date: 20090506
  Serious: Yes (Other)
  Sender: FDA-Public Use
  Company Number: A0733894A

PATIENT
  Age: 73 Year
  Sex: Female

DRUGS (7)
  1. ADVAIR DISKUS 100/50 [Suspect]
     Indication: CHRONIC OBSTRUCTIVE PULMONARY DISEASE
     Route: 055
     Dates: start: 20010101
  2. EVISTA [Concomitant]
  3. NORTRIPTYLINE HCL [Concomitant]
  4. TRAZODONE HCL [Concomitant]
  5. PREDNISONE [Concomitant]
  6. ALBUTEROL [Concomitant]
  7. UNKNOWN MEDICATION [Concomitant]

REACTIONS (1)
  - PNEUMONIA BACTERIAL [None]
